FAERS Safety Report 6070879-9 (Version None)
Quarter: 2009Q1

REPORT INFORMATION
  Report Type: 
  Country: None (occurrence: None)
  Receive Date: 20090209
  Receipt Date: 20081031
  Transmission Date: 20090719
  Serious: No
  Sender: FDA-Public Use
  Company Number: A0755049A

PATIENT
  Age: 75 Year
  Sex: Male

DRUGS (3)
  1. PAXIL [Suspect]
     Indication: DEPRESSION
     Route: 048
     Dates: start: 20080801, end: 20080801
  2. LUNESTA [Suspect]
     Indication: INSOMNIA
     Route: 048
     Dates: start: 20080818
  3. LIPITOR [Concomitant]
     Route: 048
     Dates: start: 20080723, end: 20080801

REACTIONS (3)
  - DRUG INEFFECTIVE [None]
  - ERECTILE DYSFUNCTION [None]
  - SOMNOLENCE [None]
